FAERS Safety Report 21949139 (Version 1)
Quarter: 2023Q1

REPORT INFORMATION
  Report Type: Spontaneous
  Country: CN (occurrence: CN)
  Receive Date: 20230203
  Receipt Date: 20230203
  Transmission Date: 20230417
  Serious: Yes (Other)
  Sender: FDA-Public Use
  Company Number: CN-SA-SAC20230201001180

PATIENT
  Age: 48 Year
  Sex: Female
  Weight: 65 kg

DRUGS (1)
  1. OXALIPLATIN [Suspect]
     Active Substance: OXALIPLATIN
     Indication: Colon cancer recurrent
     Dosage: 120 MG, 1X
     Route: 041
     Dates: start: 20230112, end: 20230112

REACTIONS (4)
  - Quadriplegia [Recovering/Resolving]
  - Larynx irritation [Recovering/Resolving]
  - Pruritus [Recovering/Resolving]
  - Chest discomfort [Recovering/Resolving]

NARRATIVE: CASE EVENT DATE: 20230112
